FAERS Safety Report 15391947 (Version 2)
Quarter: 2019Q1

REPORT INFORMATION
  Report Type: Spontaneous
  Country: US (occurrence: US)
  Receive Date: 20180917
  Receipt Date: 20190301
  Transmission Date: 20190417
  Serious: No
  Sender: FDA-Public Use
  Company Number: US-PFIZER INC-2018367145

PATIENT

DRUGS (1)
  1. VANCOMYCIN HCL [Suspect]
     Active Substance: VANCOMYCIN HYDROCHLORIDE
     Indication: STAPHYLOCOCCAL INFECTION
     Dosage: UNK, 2X/DAY (UNSPECIFIED  NUMBER  OF  DOSES)
     Route: 042
     Dates: start: 201806

REACTIONS (1)
  - Drug ineffective [Unknown]
